FAERS Safety Report 6008956-0 (Version None)
Quarter: 2008Q4

REPORT INFORMATION
  Report Type: 
  Country: None (occurrence: None)
  Receive Date: 20081217
  Receipt Date: 20081021
  Transmission Date: 20090506
  Serious: No
  Sender: FDA-Public Use
  Company Number: US-AMGEN-KDL312507

PATIENT
  Sex: Male

DRUGS (2)
  1. ENBREL [Suspect]
     Indication: RHEUMATOID ARTHRITIS
     Route: 058
     Dates: start: 20080829, end: 20080929
  2. METHOTREXATE [Concomitant]

REACTIONS (3)
  - ANOREXIA [None]
  - ASTHENIA [None]
  - FATIGUE [None]
